FAERS Safety Report 4908803-1 (Version None)
Quarter: 2006Q1

REPORT INFORMATION
  Report Type: 
  Country: None (occurrence: None)
  Receive Date: 20060210
  Receipt Date: 20051128
  Transmission Date: 20060701
  Serious: No
  Sender: FDA-Public Use
  Company Number: US-GLAXOSMITHKLINE-A0583708A

PATIENT
  Age: 55 Year
  Sex: Female

DRUGS (3)
  1. PAXIL CR [Suspect]
     Indication: DEPRESSION
     Dosage: 12.5MG PER DAY
     Route: 048
     Dates: start: 20051114
  2. PROCARDIA XL [Concomitant]
  3. MULTI-VITAMIN [Concomitant]

REACTIONS (3)
  - CRYING [None]
  - FEAR [None]
  - SOCIAL AVOIDANT BEHAVIOUR [None]
